FAERS Safety Report 4458146-8 (Version None)
Quarter: 2004Q3

REPORT INFORMATION
  Report Type: 
  Country: None (occurrence: None)
  Receive Date: 20040924
  Receipt Date: 20040920
  Transmission Date: 20050211
  Serious: Yes (Congenital Anomaly)
  Sender: FDA-Public Use
  Company Number: GB-GLAXOSMITHKLINE-B0345826A

PATIENT
  Sex: Male

DRUGS (2)
  1. LAMOTRIGINE [Suspect]
     Indication: EPILEPSY
     Dates: start: 20001201
  2. FOLIC ACID [Concomitant]
     Indication: PROPHYLAXIS
     Dosage: 5MG PER DAY
     Dates: start: 20010401

REACTIONS (7)
  - BILATERAL HYDRONEPHROSIS [None]
  - BODY DYSMORPHIC DISORDER [None]
  - CONGENITAL ANOMALY [None]
  - DEAFNESS UNILATERAL [None]
  - DEVELOPMENTAL DELAY [None]
  - DRUG EXPOSURE DURING PREGNANCY [None]
  - NEONATAL DISORDER [None]
